FAERS Safety Report 4575066-9 (Version None)
Quarter: 2005Q1

REPORT INFORMATION
  Report Type: 
  Country: None (occurrence: None)
  Receive Date: 20050208
  Receipt Date: 20050207
  Transmission Date: 20050727
  Serious: Yes (Other)
  Sender: FDA-Public Use
  Company Number: US-GLAXOSMITHKLINE-A0544267A

PATIENT
  Age: 30 Year
  Sex: Female

DRUGS (4)
  1. ADVAIR DISKUS 100/50 [Suspect]
     Dosage: 1PUFF VARIABLE DOSE
     Route: 055
  2. SINGULAIR [Concomitant]
  3. TEGRETOL [Concomitant]
  4. PHENOBARBITAL [Concomitant]

REACTIONS (1)
  - GRAND MAL CONVULSION [None]
